FAERS Safety Report 4587555-1 (Version None)
Quarter: 2005Q1

REPORT INFORMATION
  Report Type: 
  Country: None (occurrence: None)
  Receive Date: 20050125
  Receipt Date: 20040831
  Transmission Date: 20050727
  Serious: No
  Sender: FDA-Public Use
  Company Number: USA040977103

PATIENT
  Age: 66 Year
  Sex: Female

DRUGS (5)
  1. FORTEO [Suspect]
     Indication: OSTEOPOROSIS
     Dates: start: 20040801
  2. PEPCID [Concomitant]
  3. QUININE [Concomitant]
  4. SINGULAIR (MONTELUKAST) [Concomitant]
  5. CALCIUM GLUCONATE [Concomitant]

REACTIONS (7)
  - ASTHENIA [None]
  - DIZZINESS [None]
  - HEART RATE INCREASED [None]
  - INJECTION SITE HAEMORRHAGE [None]
  - NAUSEA [None]
  - PAIN IN EXTREMITY [None]
  - VOMITING [None]
